FAERS Safety Report 24800585 (Version 1)
Quarter: 2025Q1

REPORT INFORMATION
  Report Type: Spontaneous
  Country: MX (occurrence: None)
  Receive Date: 20250101
  Receipt Date: 20250101
  Transmission Date: 20250408
  Serious: Yes (Life-Threatening)
  Sender: FDA-CTU
  Company Number: None

PATIENT
  Age: 51 Year
  Sex: Male
  Weight: 90 kg

DRUGS (1)
  1. MAXIMUM STRENGTH COLD FLU AND SORE THROAT [Suspect]
     Active Substance: ACETAMINOPHEN\DEXTROMETHORPHAN HYDROBROMIDE\GUAIFENESIN\PHENYLEPHRINE HYDROCHLORIDE
     Indication: Influenza
     Dosage: 2 CAPSULES EVEY 4 HOURS ORAL
     Route: 048
     Dates: start: 20241230, end: 20241230

REACTIONS (8)
  - Foreign body in throat [None]
  - Choking [None]
  - Haematemesis [None]
  - Expired product administered [None]
  - Product physical consistency issue [None]
  - Asphyxia [None]
  - Back pain [None]
  - Oropharyngeal pain [None]

NARRATIVE: CASE EVENT DATE: 20241230
